FAERS Safety Report 7111164-3 (Version None)
Quarter: 2010Q4

REPORT INFORMATION
  Report Type: 
  Country: None (occurrence: None)
  Receive Date: 20101118
  Receipt Date: 20091124
  Transmission Date: 20110411
  Serious: No
  Sender: FDA-Public Use
  Company Number: US-TEVA-216579USA

PATIENT
  Age: 86 Year
  Weight: 70.37 kg

DRUGS (3)
  1. ALBUTEROL SULFATE AUTOHALER [Suspect]
     Indication: ASTHMA
     Dosage: 2 PUFFS
     Route: 055
     Dates: start: 20081101
  2. BUDESONIDE W/FORMOTEROL FUMARATE [Concomitant]
     Indication: ASTHMA
  3. MORNIFLUMATE [Concomitant]
     Indication: OSTEOPOROSIS

REACTIONS (2)
  - DYSKINESIA [None]
  - DYSPNOEA [None]
